FAERS Safety Report 4646245-7 (Version None)
Quarter: 2005Q2

REPORT INFORMATION
  Report Type: 
  Country: None (occurrence: None)
  Receive Date: 20050427
  Receipt Date: 20050405
  Transmission Date: 20051028
  Serious: Yes (Hospitalization)
  Sender: FDA-Public Use
  Company Number: US-ROCHE-400690

PATIENT
  Age: 51 Year
  Sex: Female

DRUGS (4)
  1. CAPECITABINE [Suspect]
     Dosage: GIVEN IN 2 DIVIDED DOSES. ACTUAL DOSE 4000MG DAILY.
     Route: 048
  2. CAPECITABINE [Suspect]
     Dosage: 2500MG TAKEN AM, 2000MG TAKEN PM DURATION OF 'NEARLY 2 MONTHS'
     Route: 048
  3. CAPECITABINE [Suspect]
     Dosage: ACTUAL DOSE 2500MG
     Route: 048
  4. ESOMEPRAZOLE [Concomitant]

REACTIONS (5)
  - CHOLELITHIASIS [None]
  - MUCOSAL INFLAMMATION [None]
  - PALMAR-PLANTAR ERYTHRODYSAESTHESIA SYNDROME [None]
  - PANCREATITIS ACUTE [None]
  - URINARY TRACT INFECTION [None]
